FAERS Safety Report 5669340-2 (Version None)
Quarter: 2008Q1

REPORT INFORMATION
  Report Type: 
  Country: None (occurrence: None)
  Receive Date: 20080317
  Receipt Date: 20080307
  Transmission Date: 20080703
  Serious: Yes (Other)
  Sender: FDA-Public Use
  Company Number: PHBS2007CH21188

PATIENT
  Age: 84 Year
  Sex: Female

DRUGS (2)
  1. AREDIA [Suspect]
     Indication: SPINAL FRACTURE
     Dosage: MONTHLY THEN 3 MONTHLY
     Dates: start: 19920101, end: 20070501
  2. FOSAMAX [Suspect]
     Route: 048
     Dates: end: 20070501

REACTIONS (5)
  - EATING DISORDER [None]
  - OSTEONECROSIS [None]
  - SPEECH DISORDER [None]
  - SPINAL FRACTURE [None]
  - TOOTH EXTRACTION [None]
